FAERS Safety Report 6231929-X (Version None)
Quarter: 2009Q2

REPORT INFORMATION
  Report Type: 
  Country: None (occurrence: None)
  Receive Date: 20090616
  Receipt Date: 20090608
  Transmission Date: 20091009
  Serious: Yes (Hospitalization, Other)
  Sender: FDA-Public Use
  Company Number: US-ELI_LILLY_AND_COMPANY-US200906003294

PATIENT
  Sex: Female
  Weight: 86.168 kg

DRUGS (5)
  1. BYETTA [Suspect]
     Indication: TYPE 2 DIABETES MELLITUS
     Dosage: 5 UG, 2/D
     Route: 058
     Dates: start: 20090401, end: 20090501
  2. BYETTA [Suspect]
     Dosage: 10 UG, 2/D
     Route: 058
     Dates: start: 20090501
  3. METFORMIN HCL [Concomitant]
     Dosage: 500 MG, 2/D
  4. METFORMIN HCL [Concomitant]
     Dosage: 1000 MG, EACH EVENING
  5. ACTOS [Concomitant]
     Dosage: 15 MG, DAILY (1/D)

REACTIONS (2)
  - BLADDER CANCER [None]
  - PROTEINURIA [None]
